FAERS Safety Report 4848253-X (Version None)
Quarter: 2005Q4

REPORT INFORMATION
  Report Type: 
  Country: None (occurrence: None)
  Receive Date: 20051208
  Receipt Date: 20051128
  Transmission Date: 20060501
  Serious: Yes (Death, Life-Threatening, Hospitalization)
  Sender: FDA-Public Use
  Company Number: GB-JNJFOC-20050903231

PATIENT
  Age: 79 Year
  Sex: Female

DRUGS (6)
  1. TRAMADOL HCL [Suspect]
     Indication: SCIATICA
  2. AMITRIPTYLINE HCL [Interacting]
     Indication: DEPRESSION
  3. ROFECOXIB [Concomitant]
  4. MORPHINE SULFATE [Concomitant]
  5. COPROXAMOL [Concomitant]
  6. COPROXAMOL [Concomitant]

REACTIONS (4)
  - CIRCULATORY COLLAPSE [None]
  - CONFUSIONAL STATE [None]
  - DRUG INTERACTION [None]
  - SEROTONIN SYNDROME [None]
